FAERS Safety Report 6823054-1 (Version None)
Quarter: 2010Q3

REPORT INFORMATION
  Report Type: 
  Country: None (occurrence: None)
  Receive Date: 20100708
  Receipt Date: 20100705
  Transmission Date: 20110219
  Serious: Yes (Hospitalization)
  Sender: FDA-Public Use
  Company Number: B0663554A

PATIENT
  Sex: Female

DRUGS (6)
  1. ARIXTRA [Suspect]
     Indication: DEEP VEIN THROMBOSIS
     Dosage: 7.5MG PER DAY
     Route: 058
     Dates: start: 20091212, end: 20100203
  2. VIDAZA [Suspect]
     Dosage: 75MGM2 PER DAY
     Route: 058
     Dates: start: 20090214
  3. IMOVANE [Concomitant]
     Indication: INSOMNIA
     Route: 048
  4. ACETAMINOPHEN [Concomitant]
     Indication: PAIN
     Route: 048
  5. PRIMPERAN TAB [Concomitant]
     Route: 048
  6. DURAGESIC-100 [Concomitant]
     Indication: PAIN
     Route: 062

REACTIONS (4)
  - ANAEMIA [None]
  - EPISTAXIS [None]
  - INCORRECT DRUG ADMINISTRATION DURATION [None]
  - THROMBOCYTOPENIA [None]
